FAERS Safety Report 13052539 (Version 1)
Quarter: 2016Q4

REPORT INFORMATION
  Report Type: Report from Study
  Country: None (occurrence: US)
  Receive Date: 20161221
  Receipt Date: 20161221
  Transmission Date: 20170207
  Serious: Yes (Other)
  Sender: FDA-Public Use
  Company Number: US-ABBVIE-16P-163-1667006-00

PATIENT
  Age: 69 Year
  Sex: Male
  Weight: 93.4 kg

DRUGS (2)
  1. PUVADERM [Suspect]
     Active Substance: METHOXSALEN
     Indication: PSORIASIS
     Route: 061
  2. ABBV-066 [Suspect]
     Active Substance: RISANKIZUMAB
     Indication: PSORIASIS
     Route: 058

REACTIONS (1)
  - Basal cell carcinoma [Recovered/Resolved]

NARRATIVE: CASE EVENT DATE: 20141121
